FAERS Safety Report 12187956 (Version 7)
Quarter: 2016Q4

REPORT INFORMATION
  Report Type: Spontaneous
  Country: HU (occurrence: HU)
  Receive Date: 20160317
  Receipt Date: 20161111
  Transmission Date: 20170207
  Serious: Yes (Disabling)
  Sender: FDA-Public Use
  Company Number: PHHY2016HU033614

PATIENT
  Age: 73 Year
  Sex: Female
  Weight: 58 kg

DRUGS (5)
  1. ACLASTA [Suspect]
     Active Substance: ZOLEDRONIC ACID
     Indication: OSTEOPOROSIS
     Dosage: 5 MG, UNK
     Route: 042
     Dates: start: 20151014
  2. CITROKALCIUM [Concomitant]
     Indication: OSTEOPOROSIS
     Dosage: 2 DF, BID
     Route: 065
  3. MEDROL [Concomitant]
     Active Substance: METHYLPREDNISOLONE
     Indication: SYSTEMIC LUPUS ERYTHEMATOSUS
     Dosage: 2 DF, QD
     Route: 065
     Dates: start: 2015
  4. SYNCUMAR [Concomitant]
     Active Substance: ACENOCOUMAROL
     Indication: THROMBOSIS
     Dosage: 1 DF, QD (0.5-1 MG)
     Route: 065
     Dates: start: 1998
  5. ALPHA D3 [Concomitant]
     Indication: OSTEOPOROSIS
     Dosage: 1 UG, QD
     Route: 065

REACTIONS (11)
  - Condition aggravated [Not Recovered/Not Resolved]
  - Swollen tongue [Not Recovered/Not Resolved]
  - Visual impairment [Not Recovered/Not Resolved]
  - Loose tooth [Not Recovered/Not Resolved]
  - Abasia [Not Recovered/Not Resolved]
  - Pain [Not Recovered/Not Resolved]
  - Myalgia [Not Recovered/Not Resolved]
  - Bone density decreased [Not Recovered/Not Resolved]
  - Bone pain [Not Recovered/Not Resolved]
  - Tooth fracture [Not Recovered/Not Resolved]
  - Dry mouth [Not Recovered/Not Resolved]
